FAERS Safety Report 4294509-1 (Version None)
Quarter: 2004Q1

REPORT INFORMATION
  Report Type: 
  Country: None (occurrence: None)
  Receive Date: 20040211
  Receipt Date: 20040128
  Transmission Date: 20041129
  Serious: Yes (Hospitalization)
  Sender: FDA-Public Use
  Company Number: JP_040102574

PATIENT
  Age: 36 Year
  Sex: Female

DRUGS (1)
  1. ZYPREXA [Suspect]
     Indication: SCHIZOPHRENIA
     Dosage: 1O MG/DAY

REACTIONS (6)
  - ATRIAL THROMBOSIS [None]
  - CONDITION AGGRAVATED [None]
  - ELECTROCARDIOGRAM ABNORMAL [None]
  - ELECTROCARDIOGRAM ST SEGMENT ABNORMAL [None]
  - PSYCHOTIC DISORDER [None]
  - TACHYCARDIA [None]
